FAERS Safety Report 5063262-6 (Version None)
Quarter: 2006Q3

REPORT INFORMATION
  Report Type: 
  Country: None (occurrence: None)
  Receive Date: 20060703
  Receipt Date: 20060505
  Transmission Date: 20061208
  Serious: Yes (Other)
  Sender: FDA-Public Use
  Company Number: 2006PV013332

PATIENT
  Age: 49 Year
  Sex: Female
  Weight: 121.564 kg

DRUGS (6)
  1. SYMLIN [Suspect]
     Indication: DIABETES MELLITUS NON-INSULIN-DEPENDENT
     Dosage: 120 MCG; TID; SC; 60 MCG; TID; SC
     Route: 058
     Dates: start: 20060418, end: 20060501
  2. SYMLIN [Suspect]
     Indication: DIABETES MELLITUS NON-INSULIN-DEPENDENT
     Dosage: 120 MCG; TID; SC; 60 MCG; TID; SC
     Route: 058
     Dates: start: 20060501
  3. NOVOLOG [Suspect]
     Dosage: 8 UNITS; QD; SC
     Route: 058
     Dates: end: 20060429
  4. METFORMIN HCL [Concomitant]
  5. NOVOLOG MIX 70/30 [Concomitant]
  6. EXENATIDE [Concomitant]

REACTIONS (4)
  - BLOOD GLUCOSE INCREASED [None]
  - DECREASED APPETITE [None]
  - DEPRESSED LEVEL OF CONSCIOUSNESS [None]
  - HYPOGLYCAEMIA [None]
